FAERS Safety Report 17265894 (Version 1)
Quarter: 2020Q1

REPORT INFORMATION
  Report Type: Spontaneous
  Country: CZ (occurrence: CZ)
  Receive Date: 20200114
  Receipt Date: 20200114
  Transmission Date: 20200409
  Serious: Yes (Other)
  Sender: FDA-Public Use
  Company Number: CZ-TEVA-2020-CZ-1168552

PATIENT
  Age: 73 Year
  Sex: Male

DRUGS (4)
  1. FOLINIC ACID [Suspect]
     Active Substance: LEUCOVORIN
     Indication: COLORECTAL CANCER
     Route: 042
     Dates: start: 201907
  2. BEVACIZUMAB. [Suspect]
     Active Substance: BEVACIZUMAB
     Dates: start: 201907
  3. IRINOTECAN [Suspect]
     Active Substance: IRINOTECAN
     Dates: start: 201907
  4. FLUOROURACIL. [Suspect]
     Active Substance: FLUOROURACIL
     Dates: start: 201907

REACTIONS (2)
  - Bone marrow toxicity [Unknown]
  - Proteinuria [Unknown]

NARRATIVE: CASE EVENT DATE: 2019
